FAERS Safety Report 23039957 (Version 1)
Quarter: 2023Q4

REPORT INFORMATION
  Report Type: Spontaneous
  Country: ES (occurrence: ES)
  Receive Date: 20231006
  Receipt Date: 20231006
  Transmission Date: 20240110
  Serious: Yes (Other)
  Sender: FDA-Public Use
  Company Number: ES-TEVA-2023-ES-2932860

PATIENT
  Age: 17 Year

DRUGS (1)
  1. RISPERIDONE [Suspect]
     Active Substance: RISPERIDONE
     Indication: Mania
     Dosage: 4 MILLIGRAM DAILY; UP TO 4MG / DAY
     Route: 065

REACTIONS (1)
  - Hyperprolactinaemia [Unknown]
